FAERS Safety Report 11104034 (Version 2)
Quarter: 2015Q2

REPORT INFORMATION
  Report Type: Spontaneous
  Country: TH (occurrence: TH)
  Receive Date: 20150511
  Receipt Date: 20150520
  Transmission Date: 20150821
  Serious: Yes (Other)
  Sender: FDA-Public Use
  Company Number: TH-GLAXOSMITHKLINE-TH2015GSK062159

PATIENT
  Age: 30 Year
  Sex: Female

DRUGS (5)
  1. MULTIVITAMIN [Concomitant]
     Active Substance: VITAMINS
     Route: 048
  2. PREDNISOLON [Concomitant]
     Active Substance: PREDNISOLONE
     Dosage: 5 MG, UNK
     Route: 048
  3. CALCIUM SUPPLEMENT [Concomitant]
     Active Substance: CALCIUM
     Route: 048
  4. REVOLADE [Suspect]
     Active Substance: ELTROMBOPAG
     Indication: PRODUCT USED FOR UNKNOWN INDICATION
     Dosage: 25 MG, UNK
     Route: 048
     Dates: start: 201411, end: 201411
  5. OMEPRAZOLE. [Concomitant]
     Active Substance: OMEPRAZOLE
     Route: 048

REACTIONS (4)
  - Rash [Unknown]
  - Skin hyperpigmentation [Unknown]
  - Stevens-Johnson syndrome [Recovered/Resolved]
  - Skin exfoliation [Recovered/Resolved]
